FAERS Safety Report 17791375 (Version 1)
Quarter: 2020Q2

REPORT INFORMATION
  Report Type: Spontaneous
  Country: US (occurrence: US)
  Receive Date: 20200515
  Receipt Date: 20200515
  Transmission Date: 20200714
  Serious: No
  Sender: FDA-Public Use
  Company Number: US-LUPIN PHARMACEUTICALS INC.-2019-02489

PATIENT
  Age: 46 Year
  Sex: Female
  Weight: 88.44 kg

DRUGS (3)
  1. QUETIAPINE 100 MG TABLETS [Suspect]
     Active Substance: QUETIAPINE
     Dosage: 100 MILLIGRAM, QD
     Route: 065
     Dates: start: 20190407, end: 20190410
  2. QUETIAPINE 100 MG TABLETS [Suspect]
     Active Substance: QUETIAPINE
     Indication: BIPOLAR DISORDER
     Dosage: 100 MILLIGRAM, BID
     Route: 048
     Dates: start: 201807
  3. QUETIAPINE 100 MG TABLETS [Suspect]
     Active Substance: QUETIAPINE
     Dosage: 300 MILLIGRAM, QD
     Route: 065
     Dates: start: 20190304

REACTIONS (3)
  - Hypoaesthesia [Recovered/Resolved]
  - Hernia [Recovered/Resolved]
  - Pain in extremity [Recovered/Resolved]

NARRATIVE: CASE EVENT DATE: 201807
